FAERS Safety Report 6279702-0 (Version None)
Quarter: 2009Q3

REPORT INFORMATION
  Report Type: 
  Country: None (occurrence: None)
  Receive Date: 20090721
  Receipt Date: 20090610
  Transmission Date: 20100115
  Serious: Yes (Hospitalization)
  Sender: FDA-Public Use
  Company Number: 2009AL004608

PATIENT
  Age: 75 Year
  Sex: Male

DRUGS (9)
  1. CITALOPRAM HYDROBROMIDE [Suspect]
     Indication: DEPRESSION
     Dosage: 20 MG;QD;PO
     Route: 048
     Dates: start: 20090525, end: 20090605
  2. SPIRONOLACTONE [Suspect]
     Indication: CARDIAC FAILURE
     Dosage: 20 MG;QD;PO
     Route: 048
  3. ROPINIROLE [Concomitant]
  4. NULYTELY [Concomitant]
  5. SIMVASTATIN [Concomitant]
  6. PERINDOPRIL [Concomitant]
  7. ATROVENT [Concomitant]
  8. QUININE [Concomitant]
  9. ALBUTEROL [Concomitant]

REACTIONS (1)
  - HYPONATRAEMIA [None]
